FAERS Safety Report 8862433 (Version 1)
Quarter: 2012Q4

REPORT INFORMATION
  Report Type: 
  Country: US (occurrence: US)
  Receive Date: 20121026
  Receipt Date: 20121026
  Transmission Date: 20130627
  Serious: Yes (Other)
  Sender: FDA-Public Use
  Company Number: PHEH2012US020908

PATIENT
  Sex: Female

DRUGS (1)
  1. VIVELLE DOT [Suspect]
     Route: 062

REACTIONS (1)
  - Coeliac disease [Unknown]
